FAERS Safety Report 18498760 (Version 1)
Quarter: 2020Q4

REPORT INFORMATION
  Report Type: Spontaneous
  Country: ES (occurrence: ES)
  Receive Date: 20201113
  Receipt Date: 20201113
  Transmission Date: 20210114
  Serious: Yes (Hospitalization, Other)
  Sender: FDA-Public Use
  Company Number: ES-SUN PHARMACEUTICAL INDUSTRIES LTD-2020RR-267501

PATIENT
  Age: 54 Year
  Sex: Male

DRUGS (9)
  1. PARACETAMOL [Suspect]
     Active Substance: ACETAMINOPHEN
     Indication: STIFF PERSON SYNDROME
     Dosage: 1 GRAM, BID
     Route: 065
  2. DIAZEPAM. [Suspect]
     Active Substance: DIAZEPAM
     Indication: STIFF PERSON SYNDROME
     Dosage: 10 MILLIGRAM, BID
     Route: 065
  3. CARBAMAZEPINE. [Suspect]
     Active Substance: CARBAMAZEPINE
     Indication: STIFF PERSON SYNDROME
     Dosage: 200 MILLIGRAM, BID
     Route: 065
  4. PREGABALIN. [Suspect]
     Active Substance: PREGABALIN
     Indication: STIFF PERSON SYNDROME
     Dosage: 150 MILLIGRAM, BID
     Route: 065
  5. PREDNISONE. [Suspect]
     Active Substance: PREDNISONE
     Indication: STIFF PERSON SYNDROME
     Dosage: 50 MILLIGRAM, DAILY
     Route: 065
  6. PREGABALIN. [Suspect]
     Active Substance: PREGABALIN
     Dosage: 225 MILLIGRAM, BID
     Route: 065
  7. TRAMADOL/PARACETAMOL [Suspect]
     Active Substance: ACETAMINOPHEN\TRAMADOL
     Indication: STIFF PERSON SYNDROME
     Dosage: 75 MG/ 650 MG/ 12H
     Route: 065
  8. BACLOFEN. [Suspect]
     Active Substance: BACLOFEN
     Indication: PRODUCT USED FOR UNKNOWN INDICATION
     Dosage: 120 MILLIGRAM, DAILY
     Route: 048
  9. METAMIZOL [Suspect]
     Active Substance: METAMIZOLE SODIUM
     Indication: STIFF PERSON SYNDROME
     Dosage: 575 MILLIGRAM, BID
     Route: 065

REACTIONS (4)
  - Disease progression [Unknown]
  - Pre-existing condition improved [Recovering/Resolving]
  - Drug tolerance [Unknown]
  - Therapeutic product effect incomplete [Unknown]
